FAERS Safety Report 25536522 (Version 1)
Quarter: 2025Q3

REPORT INFORMATION
  Report Type: Spontaneous
  Country: CA (occurrence: CA)
  Receive Date: 20250709
  Receipt Date: 20250709
  Transmission Date: 20251020
  Serious: Yes (Death)
  Sender: MALLINCKRODT
  Company Number: CA-MALLINCKRODT-MNK202504123

PATIENT

DRUGS (1)
  1. NITRIC OXIDE [Suspect]
     Active Substance: NITRIC OXIDE
     Indication: Thermal burn
     Route: 055
     Dates: start: 20250627, end: 20250628

REACTIONS (2)
  - Thermal burn [Fatal]
  - Product use in unapproved indication [Unknown]

NARRATIVE: CASE EVENT DATE: 20250627
